FAERS Safety Report 6823897-4 (Version None)
Quarter: 2010Q3

REPORT INFORMATION
  Report Type: 
  Country: None (occurrence: None)
  Receive Date: 20100708
  Receipt Date: 20060916
  Transmission Date: 20110219
  Serious: No
  Sender: FDA-Public Use
  Company Number: US-PFIZER INC-2006113913

PATIENT
  Sex: Female
  Weight: 76.2 kg

DRUGS (12)
  1. CHANTIX [Suspect]
     Indication: SMOKING CESSATION THERAPY
     Dates: start: 20060906
  2. IBUPROFEN [Concomitant]
  3. KLONOPIN [Concomitant]
  4. AVALIDE [Concomitant]
  5. ALBUTEROL [Concomitant]
  6. ADVAIR DISKUS 100/50 [Concomitant]
  7. DARVOCET [Concomitant]
  8. FEMHRT [Concomitant]
  9. ALL OTHER THERAPEUTIC PRODUCTS [Concomitant]
  10. XOPENEX [Concomitant]
  11. REGLAN [Concomitant]
  12. LEXAPRO [Concomitant]

REACTIONS (2)
  - DYSPNOEA [None]
  - PAIN [None]
